FAERS Safety Report 9110080 (Version 2)
Quarter: 2013Q2

REPORT INFORMATION
  Report Type: Report from Study
  Country: BR (occurrence: BR)
  Receive Date: 20130222
  Receipt Date: 20130423
  Transmission Date: 20140414
  Serious: Yes (Other)
  Sender: FDA-Public Use
  Company Number: BR-ROCHE-1193255

PATIENT
  Sex: Female
  Weight: 60 kg

DRUGS (10)
  1. MABTHERA [Suspect]
     Indication: RHEUMATOID ARTHRITIS
     Route: 065
  2. ENALAPRIL [Concomitant]
  3. OMEPRAZOLE [Concomitant]
  4. PURAN T4 [Concomitant]
  5. FOLIC ACID [Concomitant]
  6. PREDNISONE [Concomitant]
  7. METHOTREXATE [Concomitant]
  8. DOMPERIDONE [Concomitant]
  9. INDAPEN [Concomitant]
  10. CYCLOPHOSPHAMIDE [Concomitant]

REACTIONS (4)
  - Weight decreased [Recovered/Resolved]
  - Rheumatoid vasculitis [Recovered/Resolved]
  - Alopecia [Recovered/Resolved]
  - Vomiting [Recovered/Resolved]
